FAERS Safety Report 7387282-1 (Version None)
Quarter: 2011Q1

REPORT INFORMATION
  Report Type: 
  Country: None (occurrence: None)
  Receive Date: 20110331
  Receipt Date: 20110316
  Transmission Date: 20110831
  Serious: Yes (Other)
  Sender: FDA-Public Use
  Company Number: US-CUBIST-2011S1000008

PATIENT

DRUGS (2)
  1. CUBICIN [Suspect]
     Indication: CELLULITIS
     Route: 065
  2. CUBICIN [Suspect]
     Indication: ABSCESS
     Route: 065

REACTIONS (1)
  - PANCYTOPENIA [None]
